FAERS Safety Report 8255090-5 (Version None)
Quarter: 2012Q2

REPORT INFORMATION
  Report Type: 
  Country: None (occurrence: None)
  Receive Date: 20120403
  Receipt Date: 20120326
  Transmission Date: 20120825
  Serious: Yes (Hospitalization)
  Sender: FDA-Public Use
  Company Number: SI-NOVOPROD-346578

PATIENT
  Age: 50 Year
  Sex: Male
  Weight: 133 kg

DRUGS (8)
  1. KETOPROFEN [Concomitant]
     Dosage: UNK
     Dates: start: 20120117, end: 20120122
  2. METFORMIN HCL [Concomitant]
     Dosage: 1700 MG, QD
     Route: 048
  3. OSPEN                              /00001801/ [Concomitant]
     Indication: ERYSIPELAS
     Dosage: 1500 MG, TID
     Route: 065
     Dates: start: 20120114, end: 20120117
  4. FRAGMIN [Concomitant]
     Dosage: UNK
     Dates: start: 20120117, end: 20120122
  5. ULTOP                              /00661201/ [Concomitant]
     Dosage: UNK
     Dates: start: 20120117, end: 20120122
  6. ALLOPURINOL [Concomitant]
  7. VICTOZA [Suspect]
     Indication: TYPE 2 DIABETES MELLITUS
     Dosage: 0.6 MG, QD
     Route: 058
     Dates: start: 20120121, end: 20120122
  8. PENICILLIN G                       /00000901/ [Concomitant]
     Indication: ERYSIPELAS
     Dosage: 2000000 IU, UNK
     Route: 042
     Dates: start: 20120117, end: 20120124

REACTIONS (2)
  - GENERALISED ERYTHEMA [None]
  - URTICARIA [None]
